FAERS Safety Report 4413178-0 (Version None)
Quarter: 2004Q3

REPORT INFORMATION
  Report Type: 
  Country: None (occurrence: None)
  Receive Date: 20040802
  Receipt Date: 20040721
  Transmission Date: 20050211
  Serious: Yes (Death)
  Sender: FDA-Public Use
  Company Number: 2004-DE-03714GD

PATIENT
  Age: 38 Year
  Sex: Male

DRUGS (4)
  1. LAMIVUDINE [Suspect]
     Indication: HIV INFECTION
     Dosage: 150MG PER DAY
     Route: 065
  2. ZIDOVUDINE [Suspect]
     Dosage: 250MG PER DAY
     Route: 065
  3. STAVUDINE [Suspect]
     Indication: HIV INFECTION
     Dosage: 60MG PER DAY
     Route: 065
  4. VIRAMUNE [Suspect]
     Indication: HIV INFECTION
     Dosage: 200MG PER DAY
     Route: 048

REACTIONS (3)
  - BUSCHKE-LOWENSTEIN'S TUMOUR [None]
  - IMMUNE RECONSTITUTION SYNDROME [None]
  - SUPERINFECTION [None]
